FAERS Safety Report 9780556 (Version 7)
Quarter: 2016Q1

REPORT INFORMATION
  Report Type: Report from Study
  Country: BR (occurrence: BR)
  Receive Date: 20131224
  Receipt Date: 20160325
  Transmission Date: 20160526
  Serious: Yes (Hospitalization)
  Sender: FDA-Public Use
  Company Number: BR-ROCHE-1324733

PATIENT
  Sex: Female
  Weight: 56 kg

DRUGS (17)
  1. HYDROCHLOROTHIAZIDE. [Concomitant]
     Active Substance: HYDROCHLOROTHIAZIDE
     Dosage: IN THE MORNING
     Route: 065
  2. ATENOLOL. [Concomitant]
     Active Substance: ATENOLOL
  3. PREDNISONE. [Concomitant]
     Active Substance: PREDNISONE
  4. LOSARTAN. [Concomitant]
     Active Substance: LOSARTAN
     Dosage: IN THE MORNING
     Route: 065
  5. PURAN [Concomitant]
     Active Substance: LEVOTHYROXINE SODIUM
     Route: 065
  6. ALDOMET [Concomitant]
     Active Substance: METHYLDOPA
     Route: 065
  7. ROXFLAN [Concomitant]
     Active Substance: AMLODIPINE BESYLATE
     Route: 065
  8. DEPURA [Concomitant]
     Active Substance: CHOLECALCIFEROL
     Route: 065
  9. NEXIUM [Concomitant]
     Active Substance: ESOMEPRAZOLE MAGNESIUM
     Route: 065
  10. ARAVA [Concomitant]
     Active Substance: LEFLUNOMIDE
  11. XARELTO [Concomitant]
     Active Substance: RIVAROXABAN
     Route: 065
  12. MABTHERA [Suspect]
     Active Substance: RITUXIMAB
     Indication: RHEUMATOID ARTHRITIS
     Dosage: THE LATEST INFUSION WAS PERFORMED ON 31-JUL-2013 (100 MG/10 ML 2 AMPULES ).
     Route: 042
     Dates: start: 20130701, end: 20141201
  13. LOSARTAN. [Concomitant]
     Active Substance: LOSARTAN
     Dosage: IN THE MORNING
     Route: 065
  14. OSCAL [Concomitant]
     Active Substance: CALCIUM CARBONATE
     Dosage: 5000+400 MG
     Route: 065
  15. PANTOPRAZOLE [Concomitant]
     Active Substance: PANTOPRAZOLE SODIUM
     Route: 065
  16. LEFLUNOMIDE. [Concomitant]
     Active Substance: LEFLUNOMIDE
     Route: 065
  17. AMLODIPINE [Concomitant]
     Active Substance: AMLODIPINE BESYLATE
     Dosage: ONE TABLET A DAY IN THE MORNING
     Route: 065

REACTIONS (11)
  - Pulmonary embolism [Unknown]
  - Haemorrhage [Recovering/Resolving]
  - Gastritis [Recovering/Resolving]
  - Asthenia [Recovering/Resolving]
  - Sciatic nerve neuropathy [Not Recovered/Not Resolved]
  - Anaemia [Not Recovered/Not Resolved]
  - Haematochezia [Recovering/Resolving]
  - Pneumonia [Unknown]
  - Body height decreased [Not Recovered/Not Resolved]
  - Gastric haemorrhage [Recovered/Resolved]
  - Immunodeficiency [Recovering/Resolving]
